FAERS Safety Report 18129226 (Version 5)
Quarter: 2020Q4

REPORT INFORMATION
  Report Type: Spontaneous
  Country: AU (occurrence: AU)
  Receive Date: 20200810
  Receipt Date: 20201106
  Transmission Date: 20210113
  Serious: Yes (Hospitalization, Other)
  Sender: FDA-Public Use
  Company Number: AU-BRISTOL-MYERS SQUIBB COMPANY-BMS-2020-061994

PATIENT
  Age: 78 Year
  Sex: Female

DRUGS (3)
  1. ORENCIA [Suspect]
     Active Substance: ABATACEPT
     Indication: RHEUMATOID ARTHRITIS
     Dosage: 125 MILLIGRAM
     Route: 058
     Dates: start: 2012
  2. PREDNISOLONE. [Concomitant]
     Active Substance: PREDNISOLONE
     Indication: RHEUMATOID ARTHRITIS
     Dosage: 5 MILLIGRAM
     Route: 065
  3. PREDNISOLONE. [Concomitant]
     Active Substance: PREDNISOLONE
     Indication: SJOGREN^S SYNDROME

REACTIONS (17)
  - Synovitis [Unknown]
  - Back pain [Recovering/Resolving]
  - Rheumatoid lung [Unknown]
  - Pain in extremity [Recovering/Resolving]
  - Pulmonary hypertension [Unknown]
  - Pulmonary mass [Unknown]
  - Spinal disorder [Unknown]
  - Pulmonary cavitation [Unknown]
  - Arthropathy [Unknown]
  - Spinal fracture [Unknown]
  - Osteoarthritis [Unknown]
  - Limb discomfort [Unknown]
  - Rheumatoid nodule [Unknown]
  - Osteoporosis [Unknown]
  - Fibromyalgia [Unknown]
  - Carpal tunnel syndrome [Unknown]
  - Interstitial lung disease [Unknown]

NARRATIVE: CASE EVENT DATE: 2014
